FAERS Safety Report 7753071-9 (Version None)
Quarter: 2011Q3

REPORT INFORMATION
  Report Type: 
  Country: None (occurrence: None)
  Receive Date: 20110913
  Receipt Date: 20110830
  Transmission Date: 20111222
  Serious: Yes (Other)
  Sender: FDA-Public Use
  Company Number: 2011MA012747

PATIENT

DRUGS (1)
  1. ZOLPIDEM TARTRATE [Suspect]
     Indication: INSOMNIA
     Dosage: 250 MG;QD; UNK

REACTIONS (11)
  - CONFUSIONAL STATE [None]
  - SUICIDE ATTEMPT [None]
  - CHEST DISCOMFORT [None]
  - BORDERLINE PERSONALITY DISORDER [None]
  - DRUG TOLERANCE [None]
  - ADJUSTMENT DISORDER [None]
  - DELIRIUM [None]
  - AGITATION [None]
  - SINUS TACHYCARDIA [None]
  - ANXIETY [None]
  - INSOMNIA [None]
